FAERS Safety Report 7765277-3 (Version None)
Quarter: 2011Q3

REPORT INFORMATION
  Report Type: 
  Country: None (occurrence: None)
  Receive Date: 20110916
  Receipt Date: 20110907
  Transmission Date: 20111222
  Serious: Yes (Other)
  Sender: FDA-Public Use
  Company Number: MC201100430

PATIENT
  Age: 48 Year
  Sex: Male
  Weight: 92 kg

DRUGS (3)
  1. AMINOCAPROIC ACID [Concomitant]
  2. ANGIOMAX [Suspect]
     Indication: CARDIOPULMONARY BYPASS
     Dosage: SEE IMAGE
     Route: 042
  3. AMINOCAPROIC ACID [Concomitant]

REACTIONS (7)
  - HYPOTHERMIA [None]
  - COAGULATION TIME ABNORMAL [None]
  - DEEP VEIN THROMBOSIS [None]
  - COAGULOPATHY [None]
  - HAEMORRHAGE [None]
  - DEEP VEIN THROMBOSIS POSTOPERATIVE [None]
  - OFF LABEL USE [None]
